FAERS Safety Report 8260435-6 (Version None)
Quarter: 2012Q2

REPORT INFORMATION
  Report Type: 
  Country: None (occurrence: None)
  Receive Date: 20120404
  Receipt Date: 20120327
  Transmission Date: 20120825
  Serious: Yes (Other)
  Sender: FDA-Public Use
  Company Number: US-ABBOTT-12P-163-0919250-00

PATIENT
  Sex: Female

DRUGS (4)
  1. HUMIRA [Suspect]
     Indication: CROHN'S DISEASE
     Dosage: DAY ONE
     Dates: start: 20120228, end: 20120228
  2. HUMIRA [Suspect]
     Dosage: DAY TWO
     Dates: start: 20120301, end: 20120301
  3. CVS FOLIC ACID [Concomitant]
     Indication: PRODUCT USED FOR UNKNOWN INDICATION
     Route: 048
  4. HUMIRA [Suspect]

REACTIONS (4)
  - HAEMOGLOBIN DECREASED [None]
  - COLITIS [None]
  - ANAEMIA [None]
  - HAEMATOCRIT DECREASED [None]
